FAERS Safety Report 6031521-6 (Version None)
Quarter: 2008Q4

REPORT INFORMATION
  Report Type: 
  Country: None (occurrence: None)
  Receive Date: 20081222
  Receipt Date: 20081022
  Transmission Date: 20090506
  Serious: No
  Sender: FDA-Public Use
  Company Number: US-WYE-H06531708

PATIENT
  Age: 42 Year
  Sex: Female
  Weight: 124.4 kg

DRUGS (14)
  1. PRISTIQ [Suspect]
     Indication: DEPRESSION
     Dosage: 50 MG 1X PER 1 DAY, ORAL
     Route: 048
     Dates: start: 20080601
  2. OMEPRAZOLE [Concomitant]
  3. HYDROCHLOROTHIAZIDE [Concomitant]
  4. ATENOLOL [Concomitant]
  5. LAMICTAL [Concomitant]
  6. LOVASTATIN [Concomitant]
  7. LORAZEPAM [Concomitant]
  8. SEROQUEL [Concomitant]
  9. GABAPENTIN [Concomitant]
  10. ADVIL [Concomitant]
  11. MIDOL [Concomitant]
  12. MULTIVITAMINS (ASCORBIC ACID/ERGOCALCIFEROL/FOLIC ACID/NICOTINAMIDE/PA [Concomitant]
  13. EXCEDRIN (ACETYLSALICYLIC ACID/CAFFEINE/PARACETAMOL/SALICYLAMIDE) [Concomitant]
  14. L-METHYLFOLATE (L-METHYLFOLATE) [Concomitant]

REACTIONS (1)
  - ALOPECIA [None]
